FAERS Safety Report 6638561-4 (Version None)
Quarter: 2010Q1

REPORT INFORMATION
  Report Type: 
  Country: None (occurrence: None)
  Receive Date: 20100301
  Receipt Date: 20090611
  Transmission Date: 20100710
  Serious: Yes (Hospitalization)
  Sender: FDA-Public Use
  Company Number: RB-16861-2009

PATIENT
  Age: 38 Year
  Sex: Male

DRUGS (1)
  1. SUBOXONE [Suspect]
     Indication: DRUG DEPENDENCE
     Dosage: SUBLINGUAL
     Route: 060
     Dates: end: 20090610

REACTIONS (1)
  - HYPERSENSITIVITY [None]
